FAERS Safety Report 21023052 (Version 1)
Quarter: 2022Q2

REPORT INFORMATION
  Report Type: Spontaneous
  Country: US (occurrence: US)
  Receive Date: 20220629
  Receipt Date: 20220629
  Transmission Date: 20220721
  Serious: No
  Sender: FDA-Public Use
  Company Number: US-009507513-2206USA000081

PATIENT
  Age: 72 Year
  Sex: Male

DRUGS (9)
  1. JANUVIA [Suspect]
     Active Substance: SITAGLIPTIN PHOSPHATE
     Indication: Diabetes mellitus inadequate control
     Dosage: 1 TABLET DAILY
     Route: 048
     Dates: start: 20220102, end: 20220524
  2. METFORMIN [Concomitant]
     Active Substance: METFORMIN HYDROCHLORIDE
     Dosage: 1 TABLET, BID
     Route: 048
  3. OMEPRAZOLE [Concomitant]
     Active Substance: OMEPRAZOLE
     Dosage: 1 CAPSULE, QD
     Route: 048
  4. HYDROCORTISONE [Concomitant]
     Active Substance: HYDROCORTISONE
     Dosage: 1 APP APPLIED TOPICALLY 3 TIMES A DAY, AS NEEDED
     Route: 061
  5. ALEVE [Concomitant]
     Active Substance: NAPROXEN SODIUM
     Dosage: 220 MG 1 TAB(S) ORALLY QSH, AS NEEDED
  6. VITAMINS [Concomitant]
     Active Substance: VITAMINS
     Dosage: 1 TAB(S) ONCE A DAY
     Route: 048
  7. SILDENAFIL CITRATE [Concomitant]
     Active Substance: SILDENAFIL CITRATE
     Dosage: 100 MG 1 TAB(S) ONCE A DAY
     Route: 048
  8. NEOMYCIN;POLYMYXIN [Concomitant]
     Dosage: DROPS 3 TIMES A DAY
  9. LIPITOR [Concomitant]
     Active Substance: ATORVASTATIN CALCIUM
     Dosage: 1 TABLET BY MOUTH DAILY ORALLY 1 TIME DAILY (QD)
     Route: 048

REACTIONS (4)
  - Drug ineffective [Recovering/Resolving]
  - Blood glucose increased [Recovering/Resolving]
  - Glycosylated haemoglobin increased [Recovering/Resolving]
  - Prostatic specific antigen increased [Unknown]

NARRATIVE: CASE EVENT DATE: 20220102
